FAERS Safety Report 17904474 (Version 1)
Quarter: 2020Q2

REPORT INFORMATION
  Report Type: Report from Study
  Country: CA (occurrence: CA)
  Receive Date: 20200616
  Receipt Date: 20200616
  Transmission Date: 20200714
  Serious: Yes (Other)
  Sender: FDA-Public Use
  Company Number: NVSC2020CA090957

PATIENT
  Age: 72 Year
  Sex: Male

DRUGS (1)
  1. METHOTREXATE SODIUM. [Suspect]
     Active Substance: METHOTREXATE SODIUM
     Indication: RHEUMATOID ARTHRITIS
     Route: 065

REACTIONS (9)
  - Joint swelling [Unknown]
  - Musculoskeletal stiffness [Unknown]
  - Pain [Unknown]
  - Dysstasia [Unknown]
  - Fatigue [Unknown]
  - Discomfort [Unknown]
  - Ankylosing spondylitis [Unknown]
  - General physical health deterioration [Unknown]
  - Gait disturbance [Unknown]

NARRATIVE: CASE EVENT DATE: 202003
